FAERS Safety Report 16461264 (Version 4)
Quarter: 2020Q2

REPORT INFORMATION
  Report Type: Report from Study
  Country: US (occurrence: US)
  Receive Date: 20190620
  Receipt Date: 20200512
  Transmission Date: 20200713
  Serious: Yes (Hospitalization)
  Sender: FDA-Public Use
  Company Number: US-ACTELION-A-US2019-191923

PATIENT
  Age: 55 Year
  Sex: Female

DRUGS (3)
  1. ORENITRAM [Concomitant]
     Active Substance: TREPROSTINIL
     Dosage: 5.5 MG, TID
     Dates: start: 201810
  2. OPSUMIT [Suspect]
     Active Substance: MACITENTAN
     Indication: PULMONARY ARTERIAL HYPERTENSION
     Dosage: 10 MG, QD
     Route: 048
     Dates: start: 201809
  3. OPSUMIT [Suspect]
     Active Substance: MACITENTAN
     Dosage: 10 MG, QD
     Route: 048
     Dates: start: 20181003

REACTIONS (5)
  - Lung neoplasm malignant [Not Recovered/Not Resolved]
  - Pleural effusion [Not Recovered/Not Resolved]
  - Infective pericardial effusion [Recovered/Resolved]
  - Dyspnoea [Not Recovered/Not Resolved]
  - Cough [Recovered/Resolved]

NARRATIVE: CASE EVENT DATE: 201903
